FAERS Safety Report 15314584 (Version 2)
Quarter: 2018Q3

REPORT INFORMATION
  Report Type: Spontaneous
  Country: ZA (occurrence: ZA)
  Receive Date: 20180824
  Receipt Date: 20180828
  Transmission Date: 20181010
  Serious: Yes (Hospitalization)
  Sender: FDA-Public Use
  Company Number: ZA-ELI_LILLY_AND_COMPANY-ZA201808008210

PATIENT
  Sex: Female

DRUGS (1)
  1. HUMALOG [Suspect]
     Active Substance: INSULIN LISPRO
     Indication: PRODUCT USED FOR UNKNOWN INDICATION
     Dosage: UNK UNK, UNKNOWN
     Route: 065
     Dates: start: 201807

REACTIONS (8)
  - Diabetic ketoacidosis [Unknown]
  - Blood glucose increased [Unknown]
  - Lethargy [Unknown]
  - Blood glucose increased [Recovered/Resolved]
  - Stress [Unknown]
  - Panic reaction [Unknown]
  - Disorientation [Unknown]
  - Agitation [Unknown]

NARRATIVE: CASE EVENT DATE: 20180719
